FAERS Safety Report 10591222 (Version 2)
Quarter: 2014Q4

REPORT INFORMATION
  Report Type: Spontaneous
  Country: BR (occurrence: BR)
  Receive Date: 20141118
  Receipt Date: 20141224
  Transmission Date: 20150529
  Serious: Yes (Other)
  Sender: FDA-Public Use
  Company Number: BR-ASTRAZENECA-2014SE86604

PATIENT
  Age: 71 Year
  Sex: Female
  Weight: 78 kg

DRUGS (5)
  1. ASA [Concomitant]
     Active Substance: ASPIRIN
     Indication: POST PROCEDURAL STROKE
     Dates: start: 201409
  2. BRILINTA [Concomitant]
     Active Substance: TICAGRELOR
     Dates: start: 20141110
  3. CRESTOR [Suspect]
     Active Substance: ROSUVASTATIN CALCIUM
     Indication: POST PROCEDURAL STROKE
     Route: 048
     Dates: start: 201409
  4. CLEXANE [Concomitant]
     Active Substance: ENOXAPARIN SODIUM
     Indication: POST PROCEDURAL STROKE
     Route: 048
     Dates: start: 201409, end: 2014
  5. PLAVIX [Concomitant]
     Active Substance: CLOPIDOGREL BISULFATE
     Indication: POST PROCEDURAL STROKE
     Dates: start: 2014, end: 20141109

REACTIONS (1)
  - Arterial occlusive disease [Recovered/Resolved]

NARRATIVE: CASE EVENT DATE: 2014
